FAERS Safety Report 21441754 (Version 3)
Quarter: 2022Q4

REPORT INFORMATION
  Report Type: Spontaneous
  Country: US (occurrence: US)
  Receive Date: 20221011
  Receipt Date: 20221206
  Transmission Date: 20230112
  Serious: No
  Sender: FDA-Public Use
  Company Number: US-SANOFI-01310344

PATIENT
  Age: 68 Year
  Sex: Male

DRUGS (3)
  1. MULTAQ [Suspect]
     Active Substance: DRONEDARONE
     Indication: Atrial fibrillation
     Dosage: 400 MG, BID
     Dates: start: 202207
  2. MULTAQ [Suspect]
     Active Substance: DRONEDARONE
     Indication: Ventricular extrasystoles
  3. MULTAQ [Suspect]
     Active Substance: DRONEDARONE
     Indication: Supraventricular extrasystoles

REACTIONS (3)
  - Dizziness [Recovered/Resolved]
  - Dysgeusia [Not Recovered/Not Resolved]
  - Taste disorder [Unknown]
